FAERS Safety Report 7231716-X (Version None)
Quarter: 2011Q1

REPORT INFORMATION
  Report Type: 
  Country: None (occurrence: None)
  Receive Date: 20110118
  Receipt Date: 20110113
  Transmission Date: 20110831
  Serious: Yes (Other)
  Sender: FDA-Public Use
  Company Number: US-AMGEN-KDL251537

PATIENT

DRUGS (8)
  1. MULTI-VITAMIN [Concomitant]
  2. FOLIC ACID [Concomitant]
  3. CALCIUM [Concomitant]
  4. ENBREL [Suspect]
     Indication: RHEUMATOID ARTHRITIS
     Dosage: 50 MG, QWK
     Route: 058
     Dates: start: 20070101
  5. TOPROL-XL [Concomitant]
  6. AMLODIPINE [Concomitant]
  7. ENBREL [Suspect]
     Dates: start: 20050101
  8. ASPIRIN [Concomitant]

REACTIONS (6)
  - LIP SWELLING [None]
  - PHARYNGEAL OEDEMA [None]
  - DYSPNOEA [None]
  - ALOPECIA [None]
  - CATARACT [None]
  - FOOD ALLERGY [None]
